FAERS Safety Report 17610304 (Version 1)
Quarter: 2020Q1

REPORT INFORMATION
  Report Type: Spontaneous
  Country: US (occurrence: US)
  Receive Date: 20200330
  Receipt Date: 20200330
  Transmission Date: 20200409
  Serious: Yes (Death)
  Sender: FDA-Public Use
  Company Number: None

PATIENT
  Age: 69 Year
  Sex: Male

DRUGS (3)
  1. OXALIPLATIN SDV 100MG/20ML [Suspect]
     Active Substance: OXALIPLATIN
     Indication: HEPATIC CANCER
     Dosage: ?          OTHER FREQUENCY:UNKNOWN;?
     Route: 042
     Dates: start: 201912, end: 202002
  2. FLUOROURACIL SDV 500MG [Concomitant]
     Dates: start: 20191230, end: 20200219
  3. LEUCOVORIN SDV 350MG [Concomitant]
     Dates: start: 20191230, end: 20200219

REACTIONS (1)
  - Death [None]
